FAERS Safety Report 4448134-X (Version None)
Quarter: 2004Q3

REPORT INFORMATION
  Report Type: 
  Country: None (occurrence: None)
  Receive Date: 20040813
  Receipt Date: 20040422
  Transmission Date: 20050211
  Serious: Yes (Other)
  Sender: FDA-Public Use
  Company Number: S04-USA-02306-01

PATIENT
  Age: 71 Year
  Sex: Female

DRUGS (7)
  1. NAMENDA [Suspect]
     Indication: AMNESIA
     Dosage: 20 MG QD PO
     Route: 048
     Dates: start: 20040221
  2. NAMENDA [Suspect]
     Indication: AMNESIA
     Dosage: 5 MG QD PO
     Route: 048
     Dates: start: 20040131, end: 20040206
  3. NAMENDA [Suspect]
     Indication: AMNESIA
     Dosage: 10 MG QD PO
     Route: 048
     Dates: start: 20040207, end: 20040213
  4. NAMENDA [Suspect]
     Indication: AMNESIA
     Dosage: 15 MG QD PO
     Route: 048
     Dates: start: 20040214, end: 20040220
  5. AMBIEN [Concomitant]
  6. ARICEPT [Concomitant]
  7. DILANTIN [Concomitant]

REACTIONS (1)
  - CONVULSION [None]
